FAERS Safety Report 13987522 (Version 1)
Quarter: 2017Q3

REPORT INFORMATION
  Report Type: Spontaneous
  Country: US (occurrence: US)
  Receive Date: 20170919
  Receipt Date: 20170919
  Transmission Date: 20171128
  Serious: No
  Sender: FDA-Public Use
  Company Number: US-BAXTER-2017BAX033255

PATIENT
  Age: 28 Year
  Sex: Female

DRUGS (1)
  1. EXTRANEAL [Suspect]
     Active Substance: CALCIUM CHLORIDE\ICODEXTRIN\MAGNESIUM CHLORIDE\SODIUM CHLORIDE\SODIUM LACTATE
     Indication: PERITONEAL DIALYSIS
     Route: 033
     Dates: start: 20170905

REACTIONS (5)
  - Ultrafiltration failure [Unknown]
  - Headache [Unknown]
  - Abdominal distension [Unknown]
  - Tenderness [Unknown]
  - Nausea [Unknown]

NARRATIVE: CASE EVENT DATE: 20170906
